FAERS Safety Report 22827827 (Version 3)
Quarter: 2023Q4

REPORT INFORMATION
  Report Type: Report from Study
  Country: US (occurrence: US)
  Receive Date: 20230816
  Receipt Date: 20231004
  Transmission Date: 20240109
  Serious: Yes (Hospitalization)
  Sender: FDA-Public Use
  Company Number: US-PARATEK PHARMACEUTICALS, INC.-2023PTK00376

PATIENT
  Age: 57 Year
  Sex: Female
  Weight: 44 kg

DRUGS (9)
  1. NUZYRA [Suspect]
     Active Substance: OMADACYCLINE
     Indication: Mycobacterial infection
     Dosage: 200 MG, ONCE
     Route: 042
     Dates: start: 20230509, end: 20230509
  2. NUZYRA [Suspect]
     Active Substance: OMADACYCLINE
     Indication: Bronchiectasis
     Dosage: 100 MG, 1X/DAY
     Route: 042
     Dates: start: 20230510, end: 2023
  3. NUZYRA [Suspect]
     Active Substance: OMADACYCLINE
     Indication: Lower respiratory tract infection
     Dosage: 100 MG, 1X/DAY
     Route: 042
     Dates: start: 2023, end: 2023
  4. AMIKACIN [Suspect]
     Active Substance: AMIKACIN
     Dosage: 660 MG, 3X/WEEK
     Dates: start: 20230509, end: 2023
  5. IMIPENEM AND CILASTATIN [Suspect]
     Active Substance: CILASTATIN SODIUM\IMIPENEM
     Dosage: 500/250 MG, 2X/DAY (EVERY 12 HOURS)
     Dates: start: 20230509, end: 2023
  6. CLOFAZIMINE [Concomitant]
     Active Substance: CLOFAZIMINE
  7. B COMPLETE [VITAMIN B COMPLEX] [Concomitant]
  8. UBIQUINOL [Concomitant]
     Active Substance: UBIQUINOL
  9. CARAFATE [Concomitant]
     Active Substance: SUCRALFATE

REACTIONS (3)
  - Dyspnoea [Unknown]
  - Cough [Unknown]
  - Drug ineffective for unapproved indication [Unknown]

NARRATIVE: CASE EVENT DATE: 20230509
